FAERS Safety Report 8298332-2 (Version None)
Quarter: 2012Q2

REPORT INFORMATION
  Report Type: 
  Country: None (occurrence: None)
  Receive Date: 20120419
  Receipt Date: 20120413
  Transmission Date: 20120825
  Serious: Yes (Other)
  Sender: FDA-Public Use
  Company Number: PHHY2012CR031863

PATIENT
  Age: 50 Year
  Sex: Male

DRUGS (4)
  1. EXFORGE [Concomitant]
     Route: 048
  2. DICLOFENAC SODIUM [Suspect]
     Dosage: 150 MG, DAILY
     Route: 048
  3. LASIX [Concomitant]
     Dosage: 40 MG, DAILY
     Route: 048
  4. CARVEDILOL [Concomitant]
     Dosage: 5.26 MG, DAILY
     Route: 048

REACTIONS (5)
  - RENAL FAILURE [None]
  - HYPERKALAEMIA [None]
  - OEDEMA PERIPHERAL [None]
  - POLYARTERITIS NODOSA [None]
  - TRANSAMINASES INCREASED [None]
